FAERS Safety Report 5160683-8 (Version None)
Quarter: 2006Q4

REPORT INFORMATION
  Report Type: 
  Country: None (occurrence: None)
  Receive Date: 20061121
  Receipt Date: 20061102
  Transmission Date: 20070319
  Serious: Yes (Other)
  Sender: FDA-Public Use
  Company Number: DSA_81746_2006

PATIENT
  Age: 33 Year
  Sex: Male

DRUGS (4)
  1. XYREM [Suspect]
     Indication: CATAPLEXY
     Dosage: 40 G NIGHTLY PO
     Route: 048
     Dates: start: 20060901, end: 20061007
  2. XYREM [Suspect]
     Indication: NARCOLEPSY
     Dosage: 40 G NIGHTLY PO
     Route: 048
     Dates: start: 20060901, end: 20061007
  3. XYREM [Suspect]
     Indication: CATAPLEXY
     Dosage: DF UNK PO
     Route: 048
     Dates: start: 20040918
  4. XYREM [Suspect]
     Indication: NARCOLEPSY
     Dosage: DF UNK PO
     Route: 048
     Dates: start: 20040918

REACTIONS (9)
  - DRUG DEPENDENCE [None]
  - DRUG EFFECT DECREASED [None]
  - DRUG WITHDRAWAL SYNDROME [None]
  - HYPERHIDROSIS [None]
  - INSOMNIA [None]
  - PARAESTHESIA [None]
  - PILOERECTION [None]
  - TREATMENT NONCOMPLIANCE [None]
  - TREMOR [None]
